FAERS Safety Report 22693559 (Version 3)
Quarter: 2024Q1

REPORT INFORMATION
  Report Type: Spontaneous
  Country: BG (occurrence: BG)
  Receive Date: 20230711
  Receipt Date: 20240311
  Transmission Date: 20240410
  Serious: Yes (Hospitalization, Other)
  Sender: FDA-Public Use
  Company Number: BG-I.R.I.S.-S23006562

PATIENT
  Age: 62 Year
  Sex: Male

DRUGS (7)
  1. METOPROLOL [Suspect]
     Active Substance: METOPROLOL
     Indication: Product used for unknown indication
     Dosage: 25 MILLIGRAM, QD, IN THE MORNING
     Route: 048
     Dates: start: 2009
  2. CANDESARTAN [Suspect]
     Active Substance: CANDESARTAN
     Indication: Product used for unknown indication
     Dosage: 16 MILLIGRAM, QD
     Route: 048
     Dates: start: 2019
  3. PERINDOPRIL [Suspect]
     Active Substance: PERINDOPRIL
     Indication: Product used for unknown indication
     Dosage: 5 MILLIGRAM, QD
     Route: 048
     Dates: start: 2009, end: 2019
  4. ROSUVASTATIN [Concomitant]
     Active Substance: ROSUVASTATIN
     Indication: Product used for unknown indication
     Dosage: 10 MILLIGRAM, QD, IN THE EVENING
     Route: 047
     Dates: start: 2019
  5. ROSUVASTATIN [Concomitant]
     Active Substance: ROSUVASTATIN
     Dosage: 1 DOSAGE FORM, QD
     Route: 047
     Dates: start: 2019
  6. ASPIRIN [Concomitant]
     Active Substance: ASPIRIN
     Indication: Product used for unknown indication
     Dosage: 10 MILLIGRAM, QD, IN THE EVENING
     Route: 048
     Dates: start: 2009
  7. ASPIRIN [Concomitant]
     Active Substance: ASPIRIN
     Dosage: 1 DOSAGE FORM, QD
     Route: 048
     Dates: start: 2009

REACTIONS (2)
  - Basal cell carcinoma [Recovered/Resolved with Sequelae]
  - Product contamination [Unknown]

NARRATIVE: CASE EVENT DATE: 20220524
